FAERS Safety Report 4451388-7 (Version None)
Quarter: 2004Q3

REPORT INFORMATION
  Report Type: 
  Country: None (occurrence: None)
  Receive Date: 20040915
  Receipt Date: 20040901
  Transmission Date: 20050211
  Serious: Yes (Death, Other)
  Sender: FDA-Public Use
  Company Number: 2004061667

PATIENT
  Age: 41 Year
  Sex: Male

DRUGS (2)
  1. ZOLOFT [Suspect]
     Indication: DEPRESSION
     Dosage: ORAL
     Route: 048
     Dates: end: 20040501
  2. LEVETIRACETAM [Suspect]
     Indication: CONVULSION
     Dates: start: 20030501, end: 20040501

REACTIONS (3)
  - CIRCULATORY COLLAPSE [None]
  - EPISTAXIS [None]
  - STATUS EPILEPTICUS [None]
